FAERS Safety Report 13100650 (Version 1)
Quarter: 2017Q1

REPORT INFORMATION
  Report Type: Spontaneous
  Country: NO (occurrence: NO)
  Receive Date: 20170110
  Receipt Date: 20170110
  Transmission Date: 20170428
  Serious: Yes (Other)
  Sender: FDA-Public Use
  Company Number: PHHY2017NO001824

PATIENT
  Age: 0 Day
  Sex: Male
  Weight: 3.03 kg

DRUGS (2)
  1. REVOLADE [Suspect]
     Active Substance: ELTROMBOPAG
     Indication: PRODUCT USED FOR UNKNOWN INDICATION
     Dosage: MATERNAL DOSE: 50 MG
     Route: 064
     Dates: start: 20160919
  2. REVOLADE [Suspect]
     Active Substance: ELTROMBOPAG
     Dosage: MATERNAL DOSE: 75 MG
     Route: 064
     Dates: start: 20160926, end: 20160929

REACTIONS (2)
  - Foetal exposure during pregnancy [Unknown]
  - Premature baby [Unknown]

NARRATIVE: CASE EVENT DATE: 20160929
